FAERS Safety Report 17108983 (Version 3)
Quarter: 2020Q4

REPORT INFORMATION
  Report Type: Spontaneous
  Country: US (occurrence: US)
  Receive Date: 20191203
  Receipt Date: 20201015
  Transmission Date: 20210113
  Serious: Yes (Hospitalization, Other)
  Sender: FDA-Public Use
  Company Number: US-TAKEDA-2019TUS068687

PATIENT

DRUGS (54)
  1. ULORIC [Suspect]
     Active Substance: FEBUXOSTAT
     Indication: GOUT
     Dosage: 40 MILLIGRAM
     Route: 048
     Dates: start: 20100713, end: 20100911
  2. ARMOUR THYROID [Concomitant]
     Active Substance: THYROID, PORCINE
  3. BYSTOLIC [Concomitant]
     Active Substance: NEBIVOLOL HYDROCHLORIDE
  4. CYMBALTA [Concomitant]
     Active Substance: DULOXETINE HYDROCHLORIDE
  5. FLUTICASONE. [Concomitant]
     Active Substance: FLUTICASONE
  6. LANSOPRAZOLE. [Concomitant]
     Active Substance: LANSOPRAZOLE
  7. ULORIC [Suspect]
     Active Substance: FEBUXOSTAT
     Indication: ARTHRALGIA
  8. DULOXETINE. [Concomitant]
     Active Substance: DULOXETINE
     Indication: PAIN
  9. ATORVASTATIN [Concomitant]
     Active Substance: ATORVASTATIN
     Dosage: UNK
  10. NITROFURANTOIN. [Concomitant]
     Active Substance: NITROFURANTOIN
  11. ONDANSETRON [Concomitant]
     Active Substance: ONDANSETRON
  12. CEFPROZIL. [Concomitant]
     Active Substance: CEFPROZIL
  13. CEPHALEXIN                         /00145501/ [Concomitant]
     Active Substance: CEPHALEXIN
  14. CIPROFLOXACIN. [Concomitant]
     Active Substance: CIPROFLOXACIN
  15. METRONIDAZOLE. [Concomitant]
     Active Substance: METRONIDAZOLE
  16. NABUMETONE. [Concomitant]
     Active Substance: NABUMETONE
  17. VITAMIN D2 [Concomitant]
     Active Substance: ERGOCALCIFEROL
  18. LAMOTRIGINE. [Concomitant]
     Active Substance: LAMOTRIGINE
     Indication: DEPRESSION
     Dosage: UNK
     Dates: start: 2018
  19. PRAZOSIN. [Concomitant]
     Active Substance: PRAZOSIN
     Indication: DEPRESSION
     Dosage: UNK
     Dates: start: 2018
  20. HYDROCODONE BITARTRATE AND ACETAMINOPHEN [Concomitant]
     Active Substance: ACETAMINOPHEN\HYDROCODONE BITARTRATE
  21. MECLIZINE [Concomitant]
     Active Substance: MECLIZINE HYDROCHLORIDE
  22. NYSTATIN. [Concomitant]
     Active Substance: NYSTATIN
  23. OXYCODONE AND ACETAMINOPHEN [Concomitant]
     Active Substance: ACETAMINOPHEN\OXYCODONE HYDROCHLORIDE
  24. SOMA [Concomitant]
     Active Substance: CARISOPRODOL
  25. ZETIA [Concomitant]
     Active Substance: EZETIMIBE
  26. DULOXETINE. [Concomitant]
     Active Substance: DULOXETINE
     Indication: DEPRESSION
     Dosage: UNK
     Dates: start: 2018
  27. HYDROCODONE [Concomitant]
     Active Substance: HYDROCODONE
     Indication: PAIN
     Dosage: UNK
     Dates: start: 2012
  28. LAXATIVE [Concomitant]
     Active Substance: UNSPECIFIED INGREDIENT
  29. DEXILANT [Concomitant]
     Active Substance: DEXLANSOPRAZOLE
  30. GABAPENTIN. [Concomitant]
     Active Substance: GABAPENTIN
  31. METOPROLOL TARTRATE. [Concomitant]
     Active Substance: METOPROLOL TARTRATE
  32. LEVOTHYROXINE. [Concomitant]
     Active Substance: LEVOTHYROXINE
     Indication: BLOOD THYROID STIMULATING HORMONE ABNORMAL
     Dosage: UNK
     Dates: start: 2010
  33. AZITHROMYCIN ANHYDROUS. [Concomitant]
     Active Substance: AZITHROMYCIN ANHYDROUS
  34. HALFLYTELY + BISACODYL BOWEL PREP KIT [Concomitant]
  35. OMEPRAZOLE. [Concomitant]
     Active Substance: OMEPRAZOLE
  36. SEROQUEL [Concomitant]
     Active Substance: QUETIAPINE FUMARATE
  37. SERTRALINE [Concomitant]
     Active Substance: SERTRALINE HYDROCHLORIDE
  38. LOSARTAN. [Concomitant]
     Active Substance: LOSARTAN
     Indication: BLOOD PRESSURE ABNORMAL
     Dosage: UNK
     Dates: start: 2018
  39. ALPRAZOLAM. [Concomitant]
     Active Substance: ALPRAZOLAM
  40. CLINDAMYCIN. [Concomitant]
     Active Substance: CLINDAMYCIN
  41. HYDRALAZINE [Concomitant]
     Active Substance: HYDRALAZINE HYDROCHLORIDE
  42. NEXIUM [Concomitant]
     Active Substance: ESOMEPRAZOLE MAGNESIUM
  43. PHENAZOPYRIDINE. [Concomitant]
     Active Substance: PHENAZOPYRIDINE
  44. XARELTO [Concomitant]
     Active Substance: RIVAROXABAN
  45. LORAZEPAM. [Concomitant]
     Active Substance: LORAZEPAM
     Indication: ANXIETY
     Dosage: UNK
     Dates: start: 2012
  46. PROPIONATE [Concomitant]
  47. IRBESARTAN. [Concomitant]
     Active Substance: IRBESARTAN
  48. LOPERAMIDE [Concomitant]
     Active Substance: LOPERAMIDE
  49. MELOXICAM. [Concomitant]
     Active Substance: MELOXICAM
  50. NAPROXEN. [Concomitant]
     Active Substance: NAPROXEN
  51. PEG 3350 [Concomitant]
     Active Substance: POLYETHYLENE GLYCOL 3350
  52. PREDNISONE. [Concomitant]
     Active Substance: PREDNISONE
  53. ROPINIROLE. [Concomitant]
     Active Substance: ROPINIROLE
  54. TRAMADOL. [Concomitant]
     Active Substance: TRAMADOL

REACTIONS (1)
  - Aortic aneurysm [Not Recovered/Not Resolved]

NARRATIVE: CASE EVENT DATE: 20130617
